FAERS Safety Report 5220099-2 (Version None)
Quarter: 2007Q1

REPORT INFORMATION
  Report Type: 
  Country: None (occurrence: None)
  Receive Date: 20070125
  Receipt Date: 20070125
  Transmission Date: 20070707
  Serious: Yes (Other)
  Sender: FDA-Public Use
  Company Number: None

PATIENT
  Age: 25 Year
  Sex: Female
  Weight: 48.0813 kg

DRUGS (1)
  1. ZONEGRAN [Suspect]
     Dosage: 1 Q AM, 2 Q PM   DAILY  PO   LONG TERM
     Route: 048
     Dates: start: 20061101, end: 20061231

REACTIONS (3)
  - CONVULSION [None]
  - DRUG EFFECT DECREASED [None]
  - THERAPEUTIC RESPONSE UNEXPECTED WITH DRUG SUBSTITUTION [None]
